FAERS Safety Report 18263270 (Version 1)
Quarter: 2020Q3

REPORT INFORMATION
  Report Type: Spontaneous
  Country: US (occurrence: US)
  Receive Date: 20200914
  Receipt Date: 20200914
  Transmission Date: 20201103
  Serious: No
  Sender: FDA-Public Use
  Company Number: US-RECKITT BENCKISER HEALTHCARE INT LIMITED-RB-91484-2019

PATIENT
  Age: 77 Year
  Sex: Male

DRUGS (2)
  1. MUCINEX D [Suspect]
     Active Substance: GUAIFENESIN\PSEUDOEPHEDRINE HYDROCHLORIDE
     Dosage: UNK
     Route: 065
     Dates: start: 20191014
  2. MUCINEX D [Suspect]
     Active Substance: GUAIFENESIN\PSEUDOEPHEDRINE HYDROCHLORIDE
     Indication: PRODUCT USED FOR UNKNOWN INDICATION
     Dosage: 600 MILLIGRAM, BID
     Route: 065
     Dates: start: 20191013, end: 20191013

REACTIONS (2)
  - Dysuria [Recovered/Resolved]
  - Genital pain [Recovered/Resolved]

NARRATIVE: CASE EVENT DATE: 20191013
